FAERS Safety Report 13758730 (Version 6)
Quarter: 2017Q4

REPORT INFORMATION
  Report Type: Report from Study
  Country: BR (occurrence: BR)
  Receive Date: 20170717
  Receipt Date: 20171016
  Transmission Date: 20180320
  Serious: Yes (Hospitalization, Other)
  Sender: FDA-Public Use
  Company Number: PHHY2017BR102446

PATIENT
  Sex: Male
  Weight: 80 kg

DRUGS (4)
  1. METHADONE [Concomitant]
     Active Substance: METHADONE HYDROCHLORIDE
     Indication: SPINAL PAIN
     Dosage: 10 MG, BID
     Route: 048
  2. SANDOSTATIN LAR DEPOT [Suspect]
     Active Substance: OCTREOTIDE ACETATE
     Indication: NEUROENDOCRINE TUMOUR
     Dosage: 20 MG, QMO
     Route: 030
     Dates: start: 2012
  3. SANDOSTATIN LAR DEPOT [Suspect]
     Active Substance: OCTREOTIDE ACETATE
     Dosage: 20 MG, EVERY 28 DAYS
     Route: 030
     Dates: start: 20170614
  4. LEVOTHYROXINE. [Concomitant]
     Active Substance: LEVOTHYROXINE
     Indication: HYPOTHYROIDISM
     Dosage: 125 MG, UNK
     Route: 065
     Dates: start: 1980

REACTIONS (17)
  - Chromaturia [Recovered/Resolved]
  - Ejaculation disorder [Unknown]
  - Micturition urgency [Unknown]
  - Hypertension [Recovered/Resolved]
  - Malaise [Unknown]
  - Pain [Unknown]
  - Urinary tract infection [Recovered/Resolved]
  - Abdominal pain [Recovered/Resolved]
  - Orchitis [Unknown]
  - Nausea [Recovered/Resolved]
  - Thirst [Recovered/Resolved]
  - Blood pressure increased [Unknown]
  - Constipation [Recovered/Resolved]
  - Oliguria [Recovered/Resolved]
  - Testicular swelling [Not Recovered/Not Resolved]
  - Dysuria [Recovered/Resolved]
  - Diarrhoea [Recovered/Resolved]
